FAERS Safety Report 9416894 (Version 1)
Quarter: 2013Q3

REPORT INFORMATION
  Report Type: Report from Study
  Country: ID (occurrence: ID)
  Receive Date: 20130724
  Receipt Date: 20130724
  Transmission Date: 20140515
  Serious: Yes (Other)
  Sender: FDA-Public Use
  Company Number: ID-ROCHE-1252574

PATIENT
  Age: 26 Year
  Sex: Female
  Weight: 43 kg

DRUGS (5)
  1. AVASTIN [Suspect]
     Indication: COLORECTAL CANCER METASTATIC
     Dosage: THE PATIENT RECIEVED 2 CYCLES AND THE LAST CYCLE WAS GIVEN ON 17/JUL/2012.
     Route: 041
     Dates: start: 20120626
  2. 5-FU [Concomitant]
     Indication: COLORECTAL CANCER METASTATIC
  3. LEUCOVORIN [Concomitant]
     Indication: COLORECTAL CANCER METASTATIC
  4. OXALIPLATIN [Concomitant]
     Indication: COLORECTAL CANCER METASTATIC
  5. FOLINIC ACID [Concomitant]
     Indication: COLORECTAL CANCER METASTATIC

REACTIONS (1)
  - General physical health deterioration [Unknown]
